FAERS Safety Report 14516367 (Version 6)
Quarter: 2018Q1

REPORT INFORMATION
  Report Type: Spontaneous
  Country: BE (occurrence: BE)
  Receive Date: 20180211
  Receipt Date: 20180329
  Transmission Date: 20180509
  Serious: Yes (Other)
  Sender: FDA-Public Use
  Company Number: BE-JNJFOC-20180138061

PATIENT
  Age: 5 Year
  Sex: Female

DRUGS (2)
  1. ZYRTEC [Suspect]
     Active Substance: CETIRIZINE HYDROCHLORIDE
     Indication: PRODUCT USED FOR UNKNOWN INDICATION
     Dosage: 20 GTT DAILY, DOSE INCREASED FROM 5 DROPS TO 20 DROPS
     Route: 065
     Dates: end: 20170901
  2. ZYRTEC [Suspect]
     Active Substance: CETIRIZINE HYDROCHLORIDE
     Indication: PRODUCT USED FOR UNKNOWN INDICATION
     Dosage: 5 GTT DAILY, DOSE INCREASED FROM 5 DROPS TO 20 DROPS
     Route: 065
     Dates: start: 20140101

REACTIONS (1)
  - Hepatitis fulminant [Recovering/Resolving]
